FAERS Safety Report 9464452 (Version 1)
Quarter: 2013Q3

REPORT INFORMATION
  Report Type: Report from Study
  Country: US (occurrence: US)
  Receive Date: 20130819
  Receipt Date: 20130819
  Transmission Date: 20140515
  Serious: Yes (Hospitalization)
  Sender: FDA-Public Use
  Company Number: US-GLAXOSMITHKLINE-A1037875A

PATIENT
  Age: 54 Year
  Sex: Male

DRUGS (4)
  1. OFATUMUMAB [Suspect]
     Indication: CHRONIC LYMPHOCYTIC LEUKAEMIA
     Dosage: 2000MG CYCLIC
     Route: 042
     Dates: start: 20130510
  2. METHYLPREDNISONE [Suspect]
  3. OMEPRAZOLE [Concomitant]
  4. FRAGMIN [Concomitant]
     Indication: PROPHYLAXIS
     Dosage: 5000U PER DAY
     Route: 058

REACTIONS (1)
  - Febrile neutropenia [Unknown]
